FAERS Safety Report 6389832-0 (Version None)
Quarter: 2009Q4

REPORT INFORMATION
  Report Type: 
  Country: None (occurrence: None)
  Receive Date: 20091006
  Receipt Date: 20081010
  Transmission Date: 20100525
  Serious: Yes (Hospitalization)
  Sender: FDA-Public Use
  Company Number: US-BRISTOL-MYERS SQUIBB COMPANY-14306880

PATIENT
  Age: 48 Year
  Sex: Female

DRUGS (2)
  1. AVAPRO [Suspect]
     Indication: HYPERTENSION
     Dosage: AVAPRO TAKEN BY PATIENT FOR 5 TO 6 YEARS.DURATION OVER 5YEARS
     Route: 048
     Dates: start: 20030101, end: 20080619
  2. PRIMIDONE [Concomitant]

REACTIONS (1)
  - JAUNDICE [None]
